FAERS Safety Report 13899177 (Version 1)
Quarter: 2017Q3

REPORT INFORMATION
  Report Type: Spontaneous
  Country: US (occurrence: US)
  Receive Date: 20170823
  Receipt Date: 20170823
  Transmission Date: 20171127
  Serious: No
  Sender: FDA-Public Use
  Company Number: US-JAZZ-2017-US-007643

PATIENT
  Sex: Female

DRUGS (60)
  1. ZITHROMAX [Concomitant]
     Active Substance: AZITHROMYCIN DIHYDRATE
  2. ADDERALL [Suspect]
     Active Substance: AMPHETAMINE ASPARTATE\AMPHETAMINE SULFATE\DEXTROAMPHETAMINE SACCHARATE\DEXTROAMPHETAMINE SULFATE
     Indication: PRODUCT USED FOR UNKNOWN INDICATION
  3. NUVIGIL [Concomitant]
     Active Substance: ARMODAFINIL
  4. SPRINTEC [Concomitant]
     Active Substance: ETHINYL ESTRADIOL\NORGESTIMATE
  5. BACTRIM [Concomitant]
     Active Substance: SULFAMETHOXAZOLE\TRIMETHOPRIM
  6. HYDROXYZINE HCL [Concomitant]
     Active Substance: HYDROXYZINE HYDROCHLORIDE
  7. DEXILANT [Concomitant]
     Active Substance: DEXLANSOPRAZOLE
  8. EFFEXOR [Concomitant]
     Active Substance: VENLAFAXINE HYDROCHLORIDE
  9. ALBUTEROL SULFATE. [Concomitant]
     Active Substance: ALBUTEROL SULFATE
  10. ACZONE [Concomitant]
     Active Substance: DAPSONE
  11. ONEXTON [Concomitant]
     Active Substance: BENZOYL PEROXIDE\CLINDAMYCIN PHOSPHATE
  12. ALPRAZOLAM. [Concomitant]
     Active Substance: ALPRAZOLAM
  13. CIMETIDINE [Concomitant]
     Active Substance: CIMETIDINE
  14. TRAMADOL HCL [Concomitant]
     Active Substance: TRAMADOL HYDROCHLORIDE
  15. CYCLOBENZAPRINE. [Concomitant]
     Active Substance: CYCLOBENZAPRINE
  16. ROZEREM [Concomitant]
     Active Substance: RAMELTEON
  17. SONATA [Concomitant]
     Active Substance: ZALEPLON
  18. MACROBID [Concomitant]
     Active Substance: NITROFURANTOIN\NITROFURANTOIN MONOHYDRATE
  19. PROMETHAZINE VC W/CODEINE          /01132501/ [Concomitant]
  20. XYREM [Suspect]
     Active Substance: SODIUM OXYBATE
     Indication: NARCOLEPSY
     Dosage: 2.25G, BID
     Route: 048
     Dates: start: 201502, end: 201502
  21. SINGULAIR [Concomitant]
     Active Substance: MONTELUKAST SODIUM
  22. VISTARIL                           /00058403/ [Concomitant]
  23. SIMETHICONE (DIMETHICONE) [Concomitant]
     Active Substance: DIMETHICONE
  24. DEPO-PROVERA [Concomitant]
     Active Substance: MEDROXYPROGESTERONE ACETATE
  25. XYREM [Suspect]
     Active Substance: SODIUM OXYBATE
     Dosage: 4.5 G, BID
     Route: 048
     Dates: start: 201503
  26. VENLAFAXINE HCL [Concomitant]
     Active Substance: VENLAFAXINE HYDROCHLORIDE
  27. CLARITIN [Concomitant]
     Active Substance: LORATADINE
  28. ATRALIN                            /00279601/ [Concomitant]
  29. FLAGYL [Concomitant]
     Active Substance: METRONIDAZOLE\METRONIDAZOLE HYDROCHLORIDE
  30. HYOSCYAMINE. [Concomitant]
     Active Substance: HYOSCYAMINE
  31. PYRIDIUM [Concomitant]
     Active Substance: PHENAZOPYRIDINE
  32. AMOXICILLIN. [Concomitant]
     Active Substance: AMOXICILLIN
  33. PROAIR HFA [Concomitant]
     Active Substance: ALBUTEROL SULFATE
  34. VESICARE [Concomitant]
     Active Substance: SOLIFENACIN SUCCINATE
  35. DIFLUCAN [Concomitant]
     Active Substance: FLUCONAZOLE
  36. DICYCLOMINE                        /00068601/ [Concomitant]
     Active Substance: DICYCLOMINE HYDROCHLORIDE
  37. PREDNISONE                         /00044702/ [Concomitant]
     Active Substance: PREDNISONE
  38. PRILOSEC [Concomitant]
     Active Substance: OMEPRAZOLE MAGNESIUM
  39. XANAX [Concomitant]
     Active Substance: ALPRAZOLAM
  40. CEFPROZIL. [Concomitant]
     Active Substance: CEFPROZIL
  41. TRIAMCINOLONE [Concomitant]
     Active Substance: TRIAMCINOLONE
  42. HYDROCODONE/HOMATROPINE [Concomitant]
     Active Substance: HOMATROPINE METHYLBROMIDE\HYDROCODONE BITARTRATE
  43. MELOXICAM. [Concomitant]
     Active Substance: MELOXICAM
  44. OMEPRAZOLE. [Concomitant]
     Active Substance: OMEPRAZOLE
  45. PROMETHAZINE [Concomitant]
     Active Substance: PROMETHAZINE\PROMETHAZINE HYDROCHLORIDE
  46. LEVONORGESTREL AND ETHINYL ESTRADIOL [Concomitant]
     Active Substance: ETHINYL ESTRADIOL\LEVONORGESTREL
  47. LIDOCAINE HCL [Concomitant]
     Active Substance: LIDOCAINE HYDROCHLORIDE
  48. TRETINOIN. [Concomitant]
     Active Substance: TRETINOIN
  49. VALIUM [Concomitant]
     Active Substance: DIAZEPAM
  50. DIAZEPAM. [Concomitant]
     Active Substance: DIAZEPAM
  51. AMITRIPTYLINE HCL [Concomitant]
     Active Substance: AMITRIPTYLINE
  52. NAPROXEN. [Concomitant]
     Active Substance: NAPROXEN
  53. XYREM [Suspect]
     Active Substance: SODIUM OXYBATE
     Indication: CATAPLEXY
     Dosage: DOSE ADJUSTMENT
     Route: 048
     Dates: start: 201502, end: 201503
  54. KEFLEX [Concomitant]
     Active Substance: CEPHALEXIN
  55. PROVIGIL [Concomitant]
     Active Substance: MODAFINIL
  56. EVENING PRIMEROSE OIL [Concomitant]
  57. OXYBUTYNIN [Concomitant]
     Active Substance: OXYBUTYNIN
  58. FLONASE [Concomitant]
     Active Substance: FLUTICASONE PROPIONATE
  59. YAZ [Concomitant]
     Active Substance: DROSPIRENONE\ETHINYL ESTRADIOL
  60. TRAZODONE [Concomitant]
     Active Substance: TRAZODONE HYDROCHLORIDE

REACTIONS (2)
  - Blood pressure increased [Unknown]
  - Allergy to arthropod sting [Unknown]
